FAERS Safety Report 10247591 (Version 2)
Quarter: 2014Q2

REPORT INFORMATION
  Report Type: Report from Study
  Country: US (occurrence: US)
  Receive Date: 20140619
  Receipt Date: 20140619
  Transmission Date: 20141212
  Serious: Yes (Hospitalization, Disabling, Other)
  Sender: FDA-Public Use
  Company Number: US-ABBVIE-12P-163-1002179-00

PATIENT
  Age: 60 Year
  Sex: Female

DRUGS (6)
  1. HUMIRA [Suspect]
     Indication: CROHN^S DISEASE
     Dates: start: 2008, end: 201310
  2. COUMADIN [Concomitant]
     Indication: THROMBOSIS
  3. HYDROCODONE [Concomitant]
     Indication: INTERVERTEBRAL DISC PROTRUSION
     Dosage: 5/500 MG (TAKES ON AVERAGE 2 TABLETS A DAY)
  4. CYCLOBENZAPRINE [Concomitant]
     Indication: MUSCLE RELAXANT THERAPY
  5. CYCLOBENZAPRINE [Concomitant]
     Indication: INTERVERTEBRAL DISC PROTRUSION
  6. B-12 [Concomitant]
     Indication: VITAMIN B12 DEFICIENCY
     Route: 050

REACTIONS (24)
  - Nerve injury [Not Recovered/Not Resolved]
  - Blood potassium decreased [Unknown]
  - Dehydration [Unknown]
  - Rotator cuff syndrome [Unknown]
  - Dry mouth [Unknown]
  - Road traffic accident [Unknown]
  - Pollakiuria [Unknown]
  - Intestinal obstruction [Not Recovered/Not Resolved]
  - Crohn^s disease [Not Recovered/Not Resolved]
  - Pain [Unknown]
  - Blood magnesium decreased [Recovered/Resolved]
  - Fall [Unknown]
  - Convulsion [Unknown]
  - Convulsion [Not Recovered/Not Resolved]
  - Back pain [Unknown]
  - Dry eye [Unknown]
  - Cataract [Unknown]
  - Vision blurred [Unknown]
  - Hypotension [Unknown]
  - Fall [Unknown]
  - Dizziness [Unknown]
  - Hypotension [Unknown]
  - Vision blurred [Not Recovered/Not Resolved]
  - Hypermetropia [Not Recovered/Not Resolved]
